FAERS Safety Report 5192247-4 (Version None)
Quarter: 2006Q4

REPORT INFORMATION
  Report Type: 
  Country: None (occurrence: None)
  Receive Date: 20061227
  Receipt Date: 20060914
  Transmission Date: 20070319
  Serious: Yes (Hospitalization)
  Sender: FDA-Public Use
  Company Number: IT-SANOFI-SYNTHELABO-A06200600294

PATIENT
  Sex: Male

DRUGS (4)
  1. DELTACORTENE [Concomitant]
     Indication: RHEUMATOID ARTHRITIS
     Route: 048
     Dates: start: 20050301
  2. HUMIRA [Interacting]
     Indication: RHEUMATOID ARTHRITIS
     Route: 058
     Dates: start: 20050921, end: 20060815
  3. PLAQUENIL [Suspect]
     Indication: RHEUMATOID ARTHRITIS
     Route: 048
     Dates: start: 20050830
  4. METHOTREXATE [Interacting]
     Indication: RHEUMATOID ARTHRITIS
     Route: 030
     Dates: start: 20050303, end: 20060815

REACTIONS (3)
  - BRONCHOPNEUMONIA [None]
  - DRUG INTERACTION [None]
  - PLEURAL EFFUSION [None]
